FAERS Safety Report 12248756 (Version 2)
Quarter: 2016Q2

REPORT INFORMATION
  Report Type: Spontaneous
  Country: US (occurrence: US)
  Receive Date: 20160408
  Receipt Date: 20160412
  Transmission Date: 20160815
  Serious: Yes (Hospitalization)
  Sender: FDA-Public Use
  Company Number: US-RARE DISEASE THERAPEUTICS, INC.-1050363

PATIENT
  Age: 56 Year
  Sex: Female
  Weight: 57.15 kg

DRUGS (12)
  1. AGGRENOX [Concomitant]
     Active Substance: ASPIRIN\DIPYRIDAMOLE
  2. MULTIVITAMIN [Concomitant]
     Active Substance: VITAMINS
  3. LIPITOR [Concomitant]
     Active Substance: ATORVASTATIN CALCIUM
  4. SINGULAIR [Concomitant]
     Active Substance: MONTELUKAST SODIUM
  5. VITAMIN D [Concomitant]
     Active Substance: CHOLECALCIFEROL
  6. DEMEROL [Concomitant]
     Active Substance: MEPERIDINE HYDROCHLORIDE
  7. FOLIC ACID. [Concomitant]
     Active Substance: FOLIC ACID
  8. CALCIUM [Concomitant]
     Active Substance: CALCIUM
  9. CLARITIN [Concomitant]
     Active Substance: LORATADINE
  10. CYSTADANE [Suspect]
     Active Substance: BETAINE
     Indication: METHYLENETETRAHYDROFOLATE REDUCTASE DEFICIENCY
     Route: 048
     Dates: start: 20150326
  11. VITAMIN C [Concomitant]
     Active Substance: ASCORBIC ACID
  12. MAGNESIUM [Concomitant]
     Active Substance: MAGNESIUM

REACTIONS (2)
  - Transient ischaemic attack [Recovered/Resolved]
  - Underdose [Unknown]

NARRATIVE: CASE EVENT DATE: 20160201
